FAERS Safety Report 11964963 (Version 1)
Quarter: 2016Q1

REPORT INFORMATION
  Report Type: Spontaneous
  Country: RS (occurrence: RS)
  Receive Date: 20160127
  Receipt Date: 20160127
  Transmission Date: 20160526
  Serious: Yes (Death, Life-Threatening, Hospitalization, Other)
  Sender: FDA-Public Use
  Company Number: RS-MACLEODS PHARMACEUTICALS US LTD-MAC2016002363

PATIENT

DRUGS (3)
  1. GLICLAZIDE [Suspect]
     Active Substance: GLICLAZIDE
     Indication: INTENTIONAL OVERDOSE
     Dosage: 2.4 G, 30 TABLETS
     Route: 048
  2. AMLODIPINE BESYLATE TABLET [Suspect]
     Active Substance: AMLODIPINE BESYLATE
     Indication: INTENTIONAL OVERDOSE
     Dosage: 150 MG, 30 TABLETS
     Route: 048
  3. METFORMIN [Suspect]
     Active Substance: METFORMIN HYDROCHLORIDE
     Indication: INTENTIONAL OVERDOSE
     Dosage: 10 G, 20 TABLETS
     Route: 048

REACTIONS (7)
  - Shock [Fatal]
  - Intentional overdose [Fatal]
  - Hyperglycaemia [Fatal]
  - Poisoning deliberate [Fatal]
  - Cardiotoxicity [Fatal]
  - Metabolic acidosis [Fatal]
  - Cardiac arrest [Fatal]
